FAERS Safety Report 9396680 (Version 1)
Quarter: 2013Q3

REPORT INFORMATION
  Report Type: Report from Study
  Country: CA (occurrence: CA)
  Receive Date: 20130712
  Receipt Date: 20130712
  Transmission Date: 20140515
  Serious: Yes (Other)
  Sender: FDA-Public Use
  Company Number: CA-ROCHE-1246744

PATIENT
  Sex: 0

DRUGS (11)
  1. DIAZEPAM [Suspect]
     Indication: ALCOHOL WITHDRAWAL SYNDROME
     Route: 065
  2. CLONAZEPAM [Suspect]
     Indication: ALCOHOL WITHDRAWAL SYNDROME
     Route: 065
  3. MIDAZOLAM HCL [Suspect]
     Indication: ALCOHOL WITHDRAWAL SYNDROME
     Route: 065
  4. LORAZEPAM [Suspect]
     Indication: ALCOHOL WITHDRAWAL SYNDROME
     Route: 065
  5. CLONIDINE [Concomitant]
  6. HALOPERIDOL [Concomitant]
  7. LOXAPINE [Concomitant]
  8. PHENOBARBITAL [Concomitant]
  9. PHENYTOIN [Concomitant]
  10. QUETIAPINE [Concomitant]
  11. VALPROIC ACID [Concomitant]

REACTIONS (3)
  - Depressed level of consciousness [Unknown]
  - Respiratory depression [Unknown]
  - Fall [Unknown]
